FAERS Safety Report 18632604 (Version 1)
Quarter: 2020Q4

REPORT INFORMATION
  Report Type: Spontaneous
  Country: US (occurrence: US)
  Receive Date: 20201218
  Receipt Date: 20201218
  Transmission Date: 20210114
  Serious: No
  Sender: FDA-Public Use
  Company Number: US-KYOWAKIRIN-2020BKK021926

PATIENT

DRUGS (1)
  1. POTELIGEO [Suspect]
     Active Substance: MOGAMULIZUMAB-KPKC
     Indication: TROPICAL SPASTIC PARESIS
     Dosage: 3 INFUSIONS
     Route: 065

REACTIONS (2)
  - Drug effective for unapproved indication [Unknown]
  - Rash [Recovered/Resolved]
